FAERS Safety Report 10205634 (Version 2)
Quarter: 2014Q2

REPORT INFORMATION
  Report Type: Spontaneous
  Country: DE (occurrence: DE)
  Receive Date: 20140529
  Receipt Date: 20140529
  Transmission Date: 20141212
  Serious: Yes (Other)
  Sender: FDA-Public Use
  Company Number: PHHY2014DE062432

PATIENT
  Sex: Female

DRUGS (3)
  1. MYFORTIC [Suspect]
     Dosage: UNK
  2. VALCYTE [Interacting]
     Indication: CYTOMEGALOVIRUS INFECTION
     Dosage: UNK
     Dates: start: 20140515, end: 20140517
  3. CORTISONE [Suspect]
     Dosage: UNK

REACTIONS (7)
  - Systemic lupus erythematosus [Unknown]
  - Osteoporosis [Unknown]
  - Spinal fracture [Unknown]
  - Paraneoplastic syndrome [Unknown]
  - Neoplasm [Unknown]
  - Drug interaction [Unknown]
  - Back pain [Recovering/Resolving]
